FAERS Safety Report 5487110-5 (Version None)
Quarter: 2007Q4

REPORT INFORMATION
  Report Type: 
  Country: None (occurrence: None)
  Receive Date: 20071016
  Receipt Date: 20071005
  Transmission Date: 20080405
  Serious: Yes (Other)
  Sender: FDA-Public Use
  Company Number: GR-ROCHE-523864

PATIENT
  Sex: Female

DRUGS (1)
  1. ROACCUTAN [Suspect]
     Indication: DRUG USE FOR UNKNOWN INDICATION
     Route: 065
     Dates: start: 20070619, end: 20070724

REACTIONS (2)
  - NO ADVERSE REACTION [None]
  - PREGNANCY [None]
